FAERS Safety Report 6566426-5 (Version None)
Quarter: 2010Q1

REPORT INFORMATION
  Report Type: 
  Country: None (occurrence: None)
  Receive Date: 20100202
  Receipt Date: 20100120
  Transmission Date: 20100710
  Serious: Yes (Hospitalization, Other)
  Sender: FDA-Public Use
  Company Number: PHHO2010US01244

PATIENT
  Sex: Female
  Weight: 79 kg

DRUGS (8)
  1. ALDESLEUKIN C-ALDE+INJ [Suspect]
     Indication: METASTATIC MALIGNANT MELANOMA
     Dosage: 600,000 IU/KG Q8H
     Route: 042
     Dates: start: 20090915
  2. SORAFENIB [Suspect]
     Indication: METASTATIC MALIGNANT MELANOMA
     Dosage: 600 MG, QD
     Route: 048
     Dates: start: 20091015
  3. COUMADIN [Concomitant]
  4. CLONAZEPAM [Concomitant]
  5. ZOFRAN [Concomitant]
  6. ACETAMINOPHEN [Concomitant]
  7. FAMOTIDINE [Concomitant]
  8. COMPAZINE [Concomitant]

REACTIONS (15)
  - CATHETER SITE INFECTION [None]
  - CELLULITIS [None]
  - CENTRAL VENOUS CATHETER REMOVAL [None]
  - CHILLS [None]
  - DECREASED APPETITE [None]
  - EJECTION FRACTION DECREASED [None]
  - ERYTHEMA [None]
  - FEELING ABNORMAL [None]
  - FEELING HOT [None]
  - HEADACHE [None]
  - NAUSEA [None]
  - NECK PAIN [None]
  - PAIN [None]
  - PERICARDIAL EFFUSION [None]
  - PYREXIA [None]
